FAERS Safety Report 12674419 (Version 1)
Quarter: 2016Q3

REPORT INFORMATION
  Report Type: Spontaneous
  Country: US (occurrence: US)
  Receive Date: 20160822
  Receipt Date: 20160822
  Transmission Date: 20161109
  Serious: No
  Sender: FDA-Public Use
  Company Number: US-BEH-2016058316

PATIENT
  Age: 60 Year
  Sex: Female
  Weight: 84.82 kg

DRUGS (19)
  1. IBUPROFEN. [Concomitant]
     Active Substance: IBUPROFEN
  2. L-M-X [Concomitant]
  3. OXYTOCIN. [Concomitant]
     Active Substance: OXYTOCIN
  4. AMITRIPTYLINE [Concomitant]
     Active Substance: AMITRIPTYLINE
  5. HEPARIN [Concomitant]
     Active Substance: HEPARIN SODIUM
  6. LEVOTHYROXINE. [Concomitant]
     Active Substance: LEVOTHYROXINE
  7. PROMETHAZINE [Concomitant]
     Active Substance: PROMETHAZINE\PROMETHAZINE HYDROCHLORIDE
  8. EPIPEN [Concomitant]
     Active Substance: EPINEPHRINE
  9. HYDROCODONE [Concomitant]
     Active Substance: HYDROCODONE
  10. ZEMAIRA [Suspect]
     Active Substance: .ALPHA.1-PROTEINASE INHIBITOR HUMAN
     Indication: ALPHA-1 ANTI-TRYPSIN DEFICIENCY
     Route: 042
     Dates: start: 20130221
  11. SODIUM CHLORIDE. [Concomitant]
     Active Substance: SODIUM CHLORIDE
  12. CALCIUM [Concomitant]
     Active Substance: CALCIUM
  13. POTASSIUM [Concomitant]
     Active Substance: POTASSIUM
  14. METHOCARBAMOL. [Concomitant]
     Active Substance: METHOCARBAMOL
  15. DIPHENHYDRAMINE. [Concomitant]
     Active Substance: DIPHENHYDRAMINE
  16. LASIX [Concomitant]
     Active Substance: FUROSEMIDE
  17. RIFAMPIN. [Concomitant]
     Active Substance: RIFAMPIN
  18. IRON [Concomitant]
     Active Substance: IRON
  19. PANTOPRAZOLE [Concomitant]
     Active Substance: PANTOPRAZOLE SODIUM

REACTIONS (1)
  - Upper respiratory tract infection [Unknown]

NARRATIVE: CASE EVENT DATE: 20151114
